FAERS Safety Report 13303152 (Version 2)
Quarter: 2017Q2

REPORT INFORMATION
  Report Type: Spontaneous
  Country: DE (occurrence: DE)
  Receive Date: 20170307
  Receipt Date: 20170425
  Transmission Date: 20170830
  Serious: Yes (Disabling)
  Sender: FDA-Public Use
  Company Number: GXKR2017DE000883

PATIENT
  Age: 72 Year
  Sex: Female
  Weight: 51 kg

DRUGS (1)
  1. LEVOFLOXACIN HEXAL [Suspect]
     Active Substance: LEVOFLOXACIN
     Indication: OTITIS MEDIA
     Dosage: 500 MG, ONCE DAILY
     Route: 048
     Dates: start: 20130116, end: 20130121

REACTIONS (7)
  - Tinnitus [Recovering/Resolving]
  - Musculoskeletal discomfort [Recovering/Resolving]
  - Lactose intolerance [Not Recovered/Not Resolved]
  - Ear discomfort [Recovering/Resolving]
  - Weight decreased [Recovering/Resolving]
  - Fructose intolerance [Not Recovered/Not Resolved]
  - Diarrhoea [Recovering/Resolving]

NARRATIVE: CASE EVENT DATE: 2013
